FAERS Safety Report 8080027-1 (Version None)
Quarter: 2012Q1

REPORT INFORMATION
  Report Type: 
  Country: None (occurrence: None)
  Receive Date: 20120128
  Receipt Date: 20110809
  Transmission Date: 20120608
  Serious: No
  Sender: FDA-Public Use
  Company Number: US-ABBOTT-11P-163-0845924-00

PATIENT
  Weight: 62.652 kg

DRUGS (4)
  1. ASACOL [Concomitant]
     Indication: CROHN'S DISEASE
     Dosage: 2-3 TIMES Q DAY
  2. HUMIRA [Suspect]
     Indication: CROHN'S DISEASE
     Dates: start: 20110501
  3. BENTYL [Concomitant]
     Indication: CROHN'S DISEASE
  4. ENTOCORT EC [Concomitant]
     Indication: CROHN'S DISEASE

REACTIONS (2)
  - ASTHENIA [None]
  - ALOPECIA [None]
